FAERS Safety Report 21160520 (Version 3)
Quarter: 2023Q1

REPORT INFORMATION
  Report Type: Report from Study
  Country: CN (occurrence: CN)
  Receive Date: 20220802
  Receipt Date: 20230119
  Transmission Date: 20230418
  Serious: Yes (Hospitalization)
  Sender: FDA-Public Use
  Company Number: CN-PFIZER INC-PV202200030668

PATIENT
  Age: 37 Year
  Sex: Female
  Weight: 66 kg

DRUGS (21)
  1. EPIRUBICIN HYDROCHLORIDE [Suspect]
     Active Substance: EPIRUBICIN HYDROCHLORIDE
     Indication: Triple negative breast cancer
     Dosage: 90 MG/M2, CYCLIC (1 X/2 WEEKS)
     Route: 042
     Dates: start: 20220622
  2. CYCLOPHOSPHAMIDE [Suspect]
     Active Substance: CYCLOPHOSPHAMIDE
     Indication: Triple negative breast cancer
     Dosage: 500 MG/M2, CYCLIC (1 X/2 WEEKS)
     Route: 042
     Dates: start: 20220622
  3. INVESTIGATIONAL PRODUCT [Suspect]
     Active Substance: INVESTIGATIONAL PRODUCT
     Indication: Triple negative breast cancer
     Dosage: 1 X/2 WEEKS
     Route: 042
     Dates: start: 20220224
  4. CARBOPLATIN [Concomitant]
     Active Substance: CARBOPLATIN
     Indication: Triple negative breast cancer
     Dosage: AUC1.5, THREE-WEEK DOSING FOLLOWED BY ONE-WEEK INTERVAL
     Route: 042
     Dates: start: 20220224, end: 20220608
  5. PACLITAXEL [Concomitant]
     Active Substance: PACLITAXEL
     Indication: Triple negative breast cancer
     Dosage: 100 MG/M2, (ALBUMIN BOUND), THREE-WEEK DOSING FOLLOWED BY ONE-WEEK INTERVAL
     Route: 042
     Dates: start: 20220224, end: 20220608
  6. DYPHYLLINE [Concomitant]
     Active Substance: DYPHYLLINE
     Indication: Dyspnoea
     Dosage: 0.75 G, 1X/DAY
     Route: 042
     Dates: start: 20220712, end: 20220715
  7. RABEPRAZOLE SODIUM [Concomitant]
     Active Substance: RABEPRAZOLE SODIUM
     Indication: Nausea
     Dosage: 20 MG, 2X/DAY
     Route: 042
     Dates: start: 20220712, end: 20220714
  8. RABEPRAZOLE SODIUM [Concomitant]
     Active Substance: RABEPRAZOLE SODIUM
     Indication: Vomiting
  9. CHYMOTRYPSIN [Concomitant]
     Active Substance: CHYMOTRYPSIN
     Indication: Productive cough
     Dosage: 4000 IU, Q12H
     Route: 055
     Dates: start: 20220712, end: 20220714
  10. PIPERACILLIN SODIUM\TAZOBACTAM SODIUM [Concomitant]
     Active Substance: PIPERACILLIN SODIUM\TAZOBACTAM SODIUM
     Indication: Pneumonia
     Dosage: 2.5 G, 2X/DAY
     Route: 042
     Dates: start: 20220712, end: 20220718
  11. FLUTICASONE PROPIONATE [Concomitant]
     Active Substance: FLUTICASONE PROPIONATE
     Indication: Productive cough
     Dosage: 1 MG, Q12H
     Route: 055
     Dates: start: 20220712, end: 20220714
  12. INOSINE [Concomitant]
     Active Substance: INOSINE
     Indication: Prophylaxis
     Dosage: 600 MG, Q12H
     Route: 042
     Dates: start: 20220712, end: 20220714
  13. COMPOUND AMINO ACID INJECTION (18AA-III) [Concomitant]
     Indication: Nutritional supplementation
     Dosage: 250 ML, 1X/DAY
     Route: 042
     Dates: start: 20220712, end: 20220714
  14. POTASSIUM CHLORIDE [Concomitant]
     Active Substance: POTASSIUM CHLORIDE
     Indication: Supplementation therapy
     Dosage: 7.5 ML, 1X/DAY, 10%
     Route: 042
     Dates: start: 20220712, end: 20220714
  15. POTASSIUM CHLORIDE [Concomitant]
     Active Substance: POTASSIUM CHLORIDE
     Dosage: 10 ML, 1X/DAY, 10%
     Route: 042
     Dates: start: 20220712, end: 20220712
  16. POTASSIUM CHLORIDE [Concomitant]
     Active Substance: POTASSIUM CHLORIDE
     Dosage: 15 ML, 1X/DAY, 10%
     Route: 042
     Dates: start: 20220713, end: 20220714
  17. MEDIUM AND LONG CHAIN FAT EMULSION [Concomitant]
     Indication: Nutritional supplementation
     Dosage: 250 ML, 1X/DAY
     Route: 042
     Dates: start: 20220712, end: 20220714
  18. GRANULOCYTE COLONY-STIMULATING FACTOR NOS [Concomitant]
     Active Substance: GRANULOCYTE COLONY-STIMULATING FACTOR NOS
     Indication: White blood cell count increased
     Dosage: 150 UG, 1X/DAY
     Route: 058
     Dates: start: 20220712, end: 20220712
  19. SODIUM BICARBONATE [Concomitant]
     Active Substance: SODIUM BICARBONATE
     Indication: Supplementation therapy
     Dosage: 500 ML, 1X/DAY
     Route: 042
     Dates: start: 20220712, end: 20220712
  20. DEXTROSE [Concomitant]
     Active Substance: DEXTROSE
     Indication: Supplementation therapy
     Dosage: 60 ML, 1X/DAY, 50%
     Route: 042
     Dates: start: 20220712, end: 20220714
  21. CONCENTRATE OF TRACE ELEMENTS [Concomitant]
     Indication: Nutritional supplementation
     Dosage: 40 ML, 1X/DAY
     Route: 042
     Dates: start: 20220713, end: 20220714

REACTIONS (2)
  - Visual field defect [Recovering/Resolving]
  - Visual field defect [Recovered/Resolved]

NARRATIVE: CASE EVENT DATE: 20220712
